FAERS Safety Report 9852100 (Version 1)
Quarter: 2014Q1

REPORT INFORMATION
  Report Type: Spontaneous
  Country: US (occurrence: None)
  Receive Date: 20140127
  Receipt Date: 20140127
  Transmission Date: 20141002
  Serious: Yes (Hospitalization)
  Sender: FDA-Public Use
  Company Number: UTC-043606

PATIENT
  Age: 85 Year
  Sex: Female
  Weight: 40 kg

DRUGS (3)
  1. TYVASO (6 MICROGRAM, AEROSOL FOR INHALATION) (TREPROSTINIL SODIUM) [Suspect]
     Indication: PULMONARY ARTERIAL HYPERTENSION
     Dosage: 18-54 MCG (4 IN 1 D), INHALATION
     Route: 055
     Dates: start: 20120321
  2. ADCIRCA (TADALAFIL) (UNKNOWN) [Concomitant]
  3. COUMADIN (WARFARIN) (UNKNOWN) [Concomitant]

REACTIONS (1)
  - Gastrointestinal haemorrhage [None]
